FAERS Safety Report 5085096-9 (Version None)
Quarter: 2006Q3

REPORT INFORMATION
  Report Type: 
  Country: None (occurrence: None)
  Receive Date: 20060822
  Receipt Date: 20060816
  Transmission Date: 20061208
  Serious: Yes (Hospitalization)
  Sender: FDA-Public Use
  Company Number: SE-JNJFOC-20060603522

PATIENT
  Age: 50 Year
  Sex: Female

DRUGS (12)
  1. REMICADE [Suspect]
     Indication: RHEUMATOID ARTHRITIS
     Route: 042
  2. ENBREL [Suspect]
     Indication: RHEUMATOID ARTHRITIS
     Route: 058
  3. KINERET [Suspect]
     Indication: RHEUMATOID ARTHRITIS
     Route: 058
  4. HUMIRA [Suspect]
     Indication: RHEUMATOID ARTHRITIS
     Route: 058
  5. LANSOPRAZOLE [Concomitant]
     Route: 065
  6. OPTINATE SEPTIMUM [Concomitant]
     Route: 065
  7. FOLACIN [Concomitant]
     Route: 065
  8. BEHEPAN [Concomitant]
     Route: 065
  9. PREDNISOLONE [Concomitant]
     Route: 065
  10. ORUDIS RETARD [Concomitant]
     Route: 065
  11. CALCICHEW D3 [Concomitant]
     Route: 065
  12. METHOTREXATE [Concomitant]
     Dosage: 7.5-22.5 MG ONCE EVERY WEEK
     Route: 065

REACTIONS (1)
  - FALLOPIAN TUBE CANCER [None]
